FAERS Safety Report 13875192 (Version 2)
Quarter: 2017Q4

REPORT INFORMATION
  Report Type: Spontaneous
  Country: BR (occurrence: BR)
  Receive Date: 20170816
  Receipt Date: 20171030
  Transmission Date: 20180320
  Serious: Yes (Hospitalization, Other)
  Sender: FDA-Public Use
  Company Number: BR-ABBVIE-17P-020-2073074-00

PATIENT
  Age: 64 Year
  Sex: Male
  Weight: 70 kg

DRUGS (8)
  1. DEPAKENE [Suspect]
     Active Substance: VALPROIC ACID
     Indication: CONVULSION PROPHYLAXIS
  2. DEPAKOTE [Suspect]
     Active Substance: DIVALPROEX SODIUM
     Indication: CONVULSION PROPHYLAXIS
     Dosage: THE TABLET IS SMASHED, AND ADMINISTERED VIA GASTRIC TUBE
     Route: 065
     Dates: start: 2004
  3. DEPAKOTE [Suspect]
     Active Substance: DIVALPROEX SODIUM
     Dosage: THE TABLET IS SMASHED, AND ADMINISTERED VIA GASTRIC TUBE
     Route: 065
     Dates: end: 201707
  4. DEPAKOTE [Suspect]
     Active Substance: DIVALPROEX SODIUM
     Dosage: THE TABLET IS SMASHED, AND ADMINISTERED VIA GASTRIC TUBE
     Route: 065
  5. DEPAKOTE [Suspect]
     Active Substance: DIVALPROEX SODIUM
     Dosage: THE TABLET IS SMASHED, AND ADMINISTERED VIA GASTRIC TUBE
     Route: 065
  6. DEPAKENE [Suspect]
     Active Substance: VALPROIC ACID
     Indication: SEIZURE
     Dosage: DAILY DOSE: 20 ML; ADMINISTERED VIA GASTRIC TUBE
     Route: 065
     Dates: start: 201707
  7. DEPAKOTE [Suspect]
     Active Substance: DIVALPROEX SODIUM
     Dosage: THE TABLET IS SMASHED, AND ADMINISTERED VIA GASTRIC TUBE
     Route: 065
  8. DEPAKOTE [Suspect]
     Active Substance: DIVALPROEX SODIUM
     Indication: SEIZURE
     Dosage: THE TABLET IS SMASHED, AND ADMINISTERED VIA GASTRIC TUBE
     Route: 065
     Dates: start: 2004

REACTIONS (5)
  - Cerebrovascular accident [Unknown]
  - Drug administration error [Unknown]
  - Hydrocephalus [Unknown]
  - Seizure [Unknown]
  - Seizure [Unknown]

NARRATIVE: CASE EVENT DATE: 200508
